FAERS Safety Report 16452018 (Version 1)
Quarter: 2019Q2

REPORT INFORMATION
  Report Type: Spontaneous
  Country: US (occurrence: US)
  Receive Date: 20190619
  Receipt Date: 20190619
  Transmission Date: 20190711
  Serious: No
  Sender: FDA-Public Use
  Company Number: US-ROCHE-2171516

PATIENT
  Age: 74 Year
  Sex: Female
  Weight: 79.45 kg

DRUGS (3)
  1. PREDNISONE. [Concomitant]
     Active Substance: PREDNISONE
     Route: 065
  2. LORAZEPAM. [Concomitant]
     Active Substance: LORAZEPAM
     Dosage: .5 MG TO 1MG AS NEEDED
     Route: 065
  3. ACTEMRA [Suspect]
     Active Substance: TOCILIZUMAB
     Indication: TEMPORAL ARTERITIS
     Route: 065
     Dates: start: 201801

REACTIONS (9)
  - Hair disorder [Not Recovered/Not Resolved]
  - Nervousness [Unknown]
  - Weight increased [Unknown]
  - Hair texture abnormal [Not Recovered/Not Resolved]
  - Tremor [Unknown]
  - Vision blurred [Not Recovered/Not Resolved]
  - Contusion [Recovering/Resolving]
  - Rash [Recovered/Resolved]
  - Hyperhidrosis [Unknown]

NARRATIVE: CASE EVENT DATE: 201802
